FAERS Safety Report 7412984-8 (Version None)
Quarter: 2011Q2

REPORT INFORMATION
  Report Type: 
  Country: None (occurrence: None)
  Receive Date: 20110413
  Receipt Date: 20110404
  Transmission Date: 20111010
  Serious: Yes (Hospitalization, Disabling, Other)
  Sender: FDA-Public Use
  Company Number: US-MERCK-1006USA02773

PATIENT
  Age: 76 Year
  Sex: Female
  Weight: 61 kg

DRUGS (3)
  1. FOSAMAX [Suspect]
     Route: 048
     Dates: start: 20020221, end: 20080114
  2. FOSAMAX [Suspect]
     Indication: OSTEOPOROSIS
     Route: 048
     Dates: start: 19950101
  3. ALENDRONATE SODIUM [Suspect]
     Route: 048
     Dates: start: 20080408, end: 20081101

REACTIONS (31)
  - RADICULITIS LUMBOSACRAL [None]
  - ANAEMIA [None]
  - OSTEOARTHRITIS [None]
  - HYPERSENSITIVITY [None]
  - ROTATOR CUFF SYNDROME [None]
  - FRACTURE DELAYED UNION [None]
  - BACK PAIN [None]
  - MACULAR DEGENERATION [None]
  - ARTHRITIS [None]
  - FEMUR FRACTURE [None]
  - ANXIETY [None]
  - ARTHRALGIA [None]
  - MEDICAL DEVICE PAIN [None]
  - IMPAIRED HEALING [None]
  - VOMITING [None]
  - TENDONITIS [None]
  - RHINITIS ALLERGIC [None]
  - CHEST PAIN [None]
  - ARTHROPATHY [None]
  - ADVERSE DRUG REACTION [None]
  - GOITRE [None]
  - MONARTHRITIS [None]
  - FALL [None]
  - INTERVERTEBRAL DISC DEGENERATION [None]
  - BLOOD CHOLESTEROL INCREASED [None]
  - PARAESTHESIA [None]
  - HUMERUS FRACTURE [None]
  - NEUROPATHY PERIPHERAL [None]
  - LUMBAR RADICULOPATHY [None]
  - SPINAL COLUMN STENOSIS [None]
  - SCOLIOSIS [None]
